FAERS Safety Report 6165086-5 (Version None)
Quarter: 2009Q2

REPORT INFORMATION
  Report Type: 
  Country: None (occurrence: None)
  Receive Date: 20090421
  Receipt Date: 20090421
  Transmission Date: 20091009
  Serious: Yes (Life-Threatening, Hospitalization)
  Sender: FDA-Public Use
  Company Number: None

PATIENT
  Age: 41 Year
  Sex: Female
  Weight: 74.8435 kg

DRUGS (2)
  1. PAROXETINE HCL [Suspect]
     Indication: DEPRESSION
     Dosage: 30 MG 2 DAILY PO
     Route: 048
  2. PAROXETINE HCL [Suspect]

REACTIONS (3)
  - LEGAL PROBLEM [None]
  - MENTAL DISORDER [None]
  - SUICIDE ATTEMPT [None]
